FAERS Safety Report 4499511-2 (Version None)
Quarter: 2004Q4

REPORT INFORMATION
  Report Type: 
  Country: None (occurrence: None)
  Receive Date: 20040928
  Receipt Date: 20040809
  Transmission Date: 20050328
  Serious: No
  Sender: FDA-Public Use
  Company Number: 03P-163-0245546-00

PATIENT
  Age: 42 Year
  Sex: Female
  Weight: 45.3597 kg

DRUGS (6)
  1. HUMIRA [Suspect]
     Indication: RHEUMATOID ARTHRITIS
     Dosage: 40 MG, 1 IN 2 WK, SUBCUTANEOUS
     Route: 058
     Dates: start: 20031222, end: 20040719
  2. METHOTREXATE [Concomitant]
  3. LEFLUNOMIDE [Concomitant]
  4. CALCIUM [Concomitant]
  5. POTASSIUM [Concomitant]
  6. MULTI-VITAMINS [Concomitant]

REACTIONS (10)
  - CONDITION AGGRAVATED [None]
  - HYPERSENSITIVITY [None]
  - INJECTION SITE BURNING [None]
  - INJECTION SITE ERYTHEMA [None]
  - INJECTION SITE PRURITUS [None]
  - INJECTION SITE SWELLING [None]
  - PRURITUS [None]
  - RASH [None]
  - RASH PRURITIC [None]
  - SWELLING [None]
